FAERS Safety Report 6606475-1 (Version None)
Quarter: 2010Q1

REPORT INFORMATION
  Report Type: 
  Country: None (occurrence: None)
  Receive Date: 20100226
  Receipt Date: 20100216
  Transmission Date: 20100710
  Serious: Yes (Hospitalization, Other)
  Sender: FDA-Public Use
  Company Number: PHHO2008JP15282

PATIENT
  Sex: Male
  Weight: 44 kg

DRUGS (8)
  1. EXELON [Suspect]
     Indication: DEMENTIA ALZHEIMER'S TYPE
     Dosage: DOSE LEVEL 1
     Route: 062
     Dates: start: 20080809
  2. EXELON [Suspect]
     Dosage: DOSE LEVEL 2
     Route: 062
     Dates: start: 20080906
  3. EXELON [Suspect]
     Dosage: DOSE LEVEL 3
     Route: 062
     Dates: start: 20081004
  4. EXELON [Suspect]
     Dosage: DOSE LEVEL 4
     Route: 062
     Dates: start: 20081025, end: 20081224
  5. ZYLORIC [Suspect]
     Indication: HYPERURICAEMIA
  6. ASPIRIN [Concomitant]
  7. SYMMETREL [Concomitant]
  8. RESTAMIN [Concomitant]

REACTIONS (19)
  - ACTIVITIES OF DAILY LIVING IMPAIRED [None]
  - ASTHENIA [None]
  - BLISTER [None]
  - BRADYCARDIA [None]
  - DEHYDRATION [None]
  - EOSINOPHILIC PNEUMONIA [None]
  - ERYTHEMA [None]
  - HYPOPHAGIA [None]
  - INCONTINENCE [None]
  - INFLAMMATION [None]
  - INSOMNIA [None]
  - INTERSTITIAL LUNG DISEASE [None]
  - OEDEMA [None]
  - PRURITUS [None]
  - PYREXIA [None]
  - RASH [None]
  - RESTLESSNESS [None]
  - SKIN EXFOLIATION [None]
  - VASCULITIS [None]
